FAERS Safety Report 14877323 (Version 1)
Quarter: 2018Q2

REPORT INFORMATION
  Report Type: Spontaneous
  Country: US (occurrence: US)
  Receive Date: 20180510
  Receipt Date: 20180510
  Transmission Date: 20180711
  Serious: Yes (Death)
  Sender: FDA-Public Use
  Company Number: US-GEHC-2018CSU001718

PATIENT
  Age: 87 Year
  Sex: Male

DRUGS (1)
  1. OMNIPAQUE [Suspect]
     Active Substance: IOHEXOL
     Indication: OBSTRUCTION
     Dosage: 147 ML (AT THE RATE OF 3ML/SEC, 300 PSI), SINGLE
     Route: 042
     Dates: start: 20180422, end: 20180422

REACTIONS (1)
  - Cardiac arrest [Fatal]

NARRATIVE: CASE EVENT DATE: 20180422
